FAERS Safety Report 11484624 (Version 1)
Quarter: 2015Q3

REPORT INFORMATION
  Report Type: Spontaneous
  Country: US (occurrence: US)
  Receive Date: 20150903
  Receipt Date: 20150903
  Transmission Date: 20151125
  Serious: No
  Sender: FDA-Public Use
  Company Number: US-ELI_LILLY_AND_COMPANY-US201207008773

PATIENT
  Age: 83 Year
  Sex: Female

DRUGS (17)
  1. HYDROCHLOROTHIAZIDE. [Concomitant]
     Active Substance: HYDROCHLOROTHIAZIDE
  2. CALCIUM CITRATE WITH VITAMIN D [Concomitant]
     Active Substance: CALCIUM CITRATE\VITAMIN D
  3. VITAMIN B6 [Concomitant]
     Active Substance: PYRIDOXINE HYDROCHLORIDE
  4. VASOTEC [Concomitant]
     Active Substance: ENALAPRIL MALEATE
  5. VITAMIN D [Concomitant]
     Active Substance: CHOLECALCIFEROL
  6. MAGNESIUM [Concomitant]
     Active Substance: MAGNESIUM
  7. VITAMIN C [Concomitant]
     Active Substance: ASCORBIC ACID
  8. MULTIVITAMIN [Concomitant]
     Active Substance: VITAMINS
  9. ASPIRIN. [Concomitant]
     Active Substance: ASPIRIN
  10. TRAZODONE [Concomitant]
     Active Substance: TRAZODONE HYDROCHLORIDE
  11. CYMBALTA [Suspect]
     Active Substance: DULOXETINE HYDROCHLORIDE
     Indication: FIBROMYALGIA
     Dosage: 30 MG, QD
     Route: 048
     Dates: start: 20120713, end: 20120720
  12. NORVASC [Concomitant]
     Active Substance: AMLODIPINE BESYLATE
  13. VITAMIN B12 [Concomitant]
     Active Substance: CYANOCOBALAMIN
  14. LEVOXYL [Concomitant]
     Active Substance: LEVOTHYROXINE SODIUM
  15. PROTONIX [Concomitant]
     Active Substance: PANTOPRAZOLE SODIUM
  16. FISH OIL [Concomitant]
     Active Substance: FISH OIL
  17. CO-Q10 [Concomitant]

REACTIONS (7)
  - Mouth ulceration [Unknown]
  - Drug withdrawal syndrome [Unknown]
  - Stomatitis [Unknown]
  - Fear [Unknown]
  - Nightmare [Unknown]
  - Glossodynia [Unknown]
  - Frustration [Unknown]

NARRATIVE: CASE EVENT DATE: 201207
